FAERS Safety Report 9781077 (Version 1)
Quarter: 2013Q4

REPORT INFORMATION
  Report Type: Spontaneous
  Country: US (occurrence: None)
  Receive Date: 20131223
  Receipt Date: 20131223
  Transmission Date: 20140711
  Serious: Yes (Disabling)
  Sender: FDA-Public Use
  Company Number: None

PATIENT
  Age: 23 Year
  Sex: Female
  Weight: 59.88 kg

DRUGS (1)
  1. ATIVAN [Suspect]
     Indication: INSOMNIA
     Dosage: OVER 1 YEAR 2 MG ONCE DAILY TAKEN BY MOUTH
     Route: 048

REACTIONS (4)
  - Anxiety [None]
  - Dependence [None]
  - Cardiac disorder [None]
  - Dyspnoea [None]
